FAERS Safety Report 9740189 (Version 1)
Quarter: 2013Q4

REPORT INFORMATION
  Report Type: Spontaneous
  Country: NZ (occurrence: NZ)
  Receive Date: 20131209
  Receipt Date: 20131209
  Transmission Date: 20140711
  Serious: Yes (Hospitalization)
  Sender: FDA-Public Use
  Company Number: NZ-ASTRAZENECA-2013SE87246

PATIENT
  Sex: Female

DRUGS (1)
  1. NAROPIN [Suspect]
     Route: 008

REACTIONS (2)
  - Circumstance or information capable of leading to device use error [Unknown]
  - Device failure [Unknown]
